FAERS Safety Report 12355385 (Version 1)
Quarter: 2016Q2

REPORT INFORMATION
  Report Type: Spontaneous
  Country: US (occurrence: None)
  Receive Date: 20160510
  Receipt Date: 20160510
  Transmission Date: 20160815
  Serious: No
  Sender: FDA-Public Use
  Company Number: None

PATIENT
  Age: 32 Year
  Sex: Female
  Weight: 66 kg

DRUGS (1)
  1. INJECTAFER [Suspect]
     Active Substance: FERRIC CARBOXYMALTOSE
     Indication: ANAEMIA
     Route: 042
     Dates: start: 20160428, end: 20160505

REACTIONS (5)
  - Hyperhidrosis [None]
  - Paraesthesia [None]
  - Chest discomfort [None]
  - Paraesthesia oral [None]
  - Dyspnoea [None]

NARRATIVE: CASE EVENT DATE: 20160505
